FAERS Safety Report 8268515-6 (Version None)
Quarter: 2012Q2

REPORT INFORMATION
  Report Type: 
  Country: None (occurrence: None)
  Receive Date: 20120409
  Receipt Date: 20120403
  Transmission Date: 20120825
  Serious: Yes (Hospitalization, Other)
  Sender: FDA-Public Use
  Company Number: US-GLAXOSMITHKLINE-A0956977A

PATIENT
  Age: 56 Year
  Sex: Male

DRUGS (9)
  1. AVANDAMET [Suspect]
     Indication: DIABETES MELLITUS
     Route: 048
     Dates: start: 20050721, end: 20091129
  2. METFORMIN HCL [Concomitant]
  3. ATENOLOL [Concomitant]
  4. AVANDIA [Suspect]
     Indication: DIABETES MELLITUS
     Dosage: 8MG PER DAY
     Route: 048
     Dates: start: 20050209, end: 20050721
  5. VYTORIN [Concomitant]
  6. PAXIL [Concomitant]
  7. PROTONIX [Concomitant]
  8. TRICOR [Concomitant]
  9. LORTAB [Concomitant]

REACTIONS (2)
  - CARDIOVASCULAR DISORDER [None]
  - CORONARY ARTERY DISEASE [None]
